FAERS Safety Report 13793236 (Version 1)
Quarter: 2017Q3

REPORT INFORMATION
  Report Type: Spontaneous
  Country: US (occurrence: US)
  Receive Date: 20170726
  Receipt Date: 20170726
  Transmission Date: 20171127
  Serious: No
  Sender: FDA-Public Use
  Company Number: US-MYLANLABS-2016M1032168

PATIENT
  Sex: Female

DRUGS (3)
  1. CLONIDINE. [Suspect]
     Active Substance: CLONIDINE
     Dosage: 0.1 MG, UNK
  2. CLONIDINE. [Suspect]
     Active Substance: CLONIDINE
     Dosage: 0.5 MG, UNK
  3. CLONIDINE. [Suspect]
     Active Substance: CLONIDINE
     Dosage: 0.2 MG, UNK

REACTIONS (5)
  - Hypertonic bladder [Not Recovered/Not Resolved]
  - Headache [Not Recovered/Not Resolved]
  - Tremor [Not Recovered/Not Resolved]
  - Anxiety [Not Recovered/Not Resolved]
  - Insomnia [Not Recovered/Not Resolved]
